FAERS Safety Report 10548486 (Version 3)
Quarter: 2014Q4

REPORT INFORMATION
  Report Type: Spontaneous
  Country: US (occurrence: None)
  Receive Date: 20141024
  Receipt Date: 20141117
  Transmission Date: 20150529
  Serious: Yes (Other)
  Sender: FDA-Public Use
  Company Number: ADR-2014-01963

PATIENT
  Age: 52 Year
  Sex: Female

DRUGS (2)
  1. LIORESAL [Suspect]
     Active Substance: BACLOFEN
     Indication: MUSCLE SPASTICITY
  2. BACLOFEN ORAL [Suspect]
     Active Substance: BACLOFEN
     Dosage: 20 MG PO, TID AND HS
     Route: 048

REACTIONS (6)
  - Twiddler^s syndrome [None]
  - Implant site reaction [None]
  - Implant site extravasation [None]
  - Device kink [None]
  - Suture rupture [None]
  - Device dislocation [None]
